FAERS Safety Report 16803254 (Version 1)
Quarter: 2019Q3

REPORT INFORMATION
  Report Type: Spontaneous
  Country: FR (occurrence: FR)
  Receive Date: 20190913
  Receipt Date: 20190913
  Transmission Date: 20191005
  Serious: Yes (Life-Threatening)
  Sender: FDA-Public Use
  Company Number: FR-TEVA-2019-FR-1105659

PATIENT
  Age: 16 Year
  Sex: Male
  Weight: 51 kg

DRUGS (6)
  1. LOXAPAC 25 MG, COMPRIME PELLICULE [Suspect]
     Active Substance: LOXAPINE SUCCINATE
     Indication: TOXICITY TO VARIOUS AGENTS
     Dosage: 500 MG
     Route: 048
     Dates: start: 20190820, end: 20190820
  2. IBUPROFENE [Suspect]
     Active Substance: IBUPROFEN
     Indication: TOXICITY TO VARIOUS AGENTS
     Dosage: 12 GM
     Route: 048
     Dates: start: 20190820, end: 20190820
  3. BROMAZEPAM [Suspect]
     Active Substance: BROMAZEPAM
     Indication: TOXICITY TO VARIOUS AGENTS
     Route: 048
     Dates: start: 20190820, end: 20190820
  4. DEPAKOTE [Suspect]
     Active Substance: DIVALPROEX SODIUM
     Indication: TOXICITY TO VARIOUS AGENTS
     Dosage: 10 GM
     Route: 048
     Dates: start: 20190820, end: 20190820
  5. RISPERIDONE. [Suspect]
     Active Substance: RISPERIDONE
     Indication: TOXICITY TO VARIOUS AGENTS
     Dosage: 100 MG
     Route: 048
     Dates: start: 20190820, end: 20190820
  6. SERTRALINE (CHLORHYDRATE DE) [Suspect]
     Active Substance: SERTRALINE HYDROCHLORIDE
     Indication: TOXICITY TO VARIOUS AGENTS
     Dosage: 1350 MG
     Route: 048
     Dates: start: 20190820, end: 20190820

REACTIONS (6)
  - Toxicity to various agents [Recovered/Resolved]
  - Coma [Recovered/Resolved]
  - Lactic acidosis [Recovered/Resolved with Sequelae]
  - Hypothermia [Recovered/Resolved]
  - Shock [Recovered/Resolved with Sequelae]
  - Miosis [Recovered/Resolved]

NARRATIVE: CASE EVENT DATE: 20190820
